FAERS Safety Report 7214319-2 (Version None)
Quarter: 2011Q1

REPORT INFORMATION
  Report Type: 
  Country: None (occurrence: None)
  Receive Date: 20110107
  Receipt Date: 20101228
  Transmission Date: 20110831
  Serious: Yes (Death, Hospitalization)
  Sender: FDA-Public Use
  Company Number: PT-CELGENEUS-130-21880-10101989

PATIENT
  Sex: Female
  Weight: 66 kg

DRUGS (15)
  1. REVLIMID [Suspect]
     Indication: MULTIPLE MYELOMA
     Route: 048
     Dates: start: 20100306
  2. AAS [Concomitant]
     Route: 048
     Dates: start: 20100306, end: 20100930
  3. ARANESP [Concomitant]
     Indication: ANAEMIA
     Route: 058
     Dates: start: 20100820, end: 20100930
  4. FUROSEMIDE [Concomitant]
     Route: 048
     Dates: start: 20100825, end: 20100930
  5. SODIUM CITRATE [Concomitant]
     Route: 065
     Dates: start: 20101001, end: 20101001
  6. DEXAMETHASONE [Suspect]
     Route: 048
     Dates: start: 20100918, end: 20100930
  7. PAMIDRONATE DISODIUM [Concomitant]
     Indication: SUPPORTIVE CARE
     Route: 051
     Dates: start: 20100306, end: 20100917
  8. OMEPRAZOLE [Concomitant]
     Indication: PROPHYLAXIS
     Route: 048
     Dates: start: 20100306, end: 20101001
  9. TRAMADOL [Concomitant]
     Route: 065
     Dates: start: 20101001, end: 20101001
  10. DEXAMETHASONE [Suspect]
     Indication: MULTIPLE MYELOMA
     Route: 048
     Dates: start: 20100306
  11. SODIUM BICARBONATE [Concomitant]
     Indication: METABOLIC ACIDOSIS
     Route: 065
     Dates: start: 20101001
  12. REVLIMID [Suspect]
     Route: 048
     Dates: start: 20100918, end: 20100930
  13. SODIUM LAURYL SULFATE [Concomitant]
     Route: 065
     Dates: start: 20101001, end: 20101001
  14. METOCLOPRAMIDE [Concomitant]
     Route: 051
     Dates: start: 20101001, end: 20101002
  15. POTASSIUM CHLORIDE [Concomitant]
     Route: 065
     Dates: start: 20101002, end: 20101002

REACTIONS (1)
  - SEPTIC SHOCK [None]
